FAERS Safety Report 13838121 (Version 1)
Quarter: 2017Q3

REPORT INFORMATION
  Report Type: Report from Study
  Country: CZ (occurrence: CZ)
  Receive Date: 20170807
  Receipt Date: 20170807
  Transmission Date: 20171127
  Serious: Yes (Death)
  Sender: FDA-Public Use
  Company Number: CZ-CIPLA LTD.-2017CZ13487

PATIENT

DRUGS (3)
  1. VINORELBINE [Suspect]
     Active Substance: VINORELBINE\VINORELBINE TARTRATE
     Dosage: 60 MG/M2, ON DAY 8
     Route: 048
  2. CARBOPLATIN. [Suspect]
     Active Substance: CARBOPLATIN
     Indication: NON-SMALL CELL LUNG CANCER
     Dosage: AUC-5, ON DAY 1
     Route: 042
  3. VINORELBINE [Suspect]
     Active Substance: VINORELBINE\VINORELBINE TARTRATE
     Indication: NON-SMALL CELL LUNG CANCER
     Dosage: 25 MG/M2, ON DAY 1
     Route: 042

REACTIONS (1)
  - Non-small cell lung cancer [Fatal]
